FAERS Safety Report 14818531 (Version 3)
Quarter: 2018Q2

REPORT INFORMATION
  Report Type: Spontaneous
  Country: DE (occurrence: DE)
  Receive Date: 20180427
  Receipt Date: 20180519
  Transmission Date: 20180711
  Serious: Yes (Hospitalization)
  Sender: FDA-Public Use
  Company Number: DE-AUROBINDO-AUR-APL-2018-022011

PATIENT
  Age: 72 Year
  Sex: Male

DRUGS (30)
  1. LERCANIDIPINE [Suspect]
     Active Substance: LERCANIDIPINE
     Indication: PRODUCT USED FOR UNKNOWN INDICATION
     Dosage: 5 MG, 1-0-1-0,12 HOUR
  2. SIMVASTATIN. [Concomitant]
     Active Substance: SIMVASTATIN
     Dosage: 40 MG, QD
  3. ALLOPURINOL. [Concomitant]
     Active Substance: ALLOPURINOL
     Dosage: 300 MG, QD
  4. METAMIZOLE [Concomitant]
     Active Substance: METAMIZOLE
     Dosage: ()
  5. PHENPROCOUMON [Concomitant]
     Active Substance: PHENPROCOUMON
     Indication: PRODUCT USED FOR UNKNOWN INDICATION
     Dosage: 3 MILLIGRAM,NK
  6. METAMIZOLE [Concomitant]
     Active Substance: METAMIZOLE
     Indication: PRODUCT USED FOR UNKNOWN INDICATION
     Dosage: NK MG, BEDARF ()
     Route: 065
  7. METAMIZOLE [Concomitant]
     Active Substance: METAMIZOLE
     Dosage: UNK ()
  8. TOVIAZ [Suspect]
     Active Substance: FESOTERODINE FUMARATE
     Dosage: 8 MG, QD
     Route: 065
  9. SIMVASTATIN. [Concomitant]
     Active Substance: SIMVASTATIN
     Dosage: 40 MG, QD
  10. TRENANTONE [Suspect]
     Active Substance: LEUPROLIDE ACETATE
     Indication: PRODUCT USED FOR UNKNOWN INDICATION
     Dosage: NK MG, 1X ALLE 3 MONATE ()
     Route: 065
  11. TOVIAZ [Suspect]
     Active Substance: FESOTERODINE FUMARATE
     Dosage: 8 MG, QD
     Route: 065
  12. ALLOPURINOL. [Concomitant]
     Active Substance: ALLOPURINOL
     Indication: PRODUCT USED FOR UNKNOWN INDICATION
     Dosage: 300 MG, 1-0-0-0
     Route: 065
  13. ALLOPURINOL. [Concomitant]
     Active Substance: ALLOPURINOL
     Dosage: 300 MG, QD
  14. IBUPROFEN. [Suspect]
     Active Substance: IBUPROFEN
     Indication: PRODUCT USED FOR UNKNOWN INDICATION
     Dosage: NK MG, BEDARF ()
     Route: 065
  15. IBUPROFEN. [Suspect]
     Active Substance: IBUPROFEN
     Dosage: 1 {DF} 1 DAY
  16. TRENANTONE [Suspect]
     Active Substance: LEUPROLIDE ACETATE
     Dosage: UNK ()
     Route: 065
  17. TRENANTONE [Suspect]
     Active Substance: LEUPROLIDE ACETATE
     Dosage: ()
     Route: 065
  18. TELMISARTAN/HYDROCHLOROTHIAZID EGIS [Suspect]
     Active Substance: HYDROCHLOROTHIAZIDE\TELMISARTAN
     Indication: PRODUCT USED FOR UNKNOWN INDICATION
     Dosage: UNK UNK, ONCE A DAY
     Route: 065
  19. SIMVASTATIN. [Concomitant]
     Active Substance: SIMVASTATIN
     Indication: PRODUCT USED FOR UNKNOWN INDICATION
     Dosage: 40 MG, 0-0-1-0
     Route: 065
  20. LERCANIDIPINE [Suspect]
     Active Substance: LERCANIDIPINE
     Dosage: 5 MILLIGRAM
     Route: 065
  21. SIMVASTATIN. [Concomitant]
     Active Substance: SIMVASTATIN
     Dosage: 40 MG, QD
  22. SIMVASTATIN. [Concomitant]
     Active Substance: SIMVASTATIN
     Route: 065
  23. ALLOPURINOL. [Concomitant]
     Active Substance: ALLOPURINOL
     Route: 065
  24. LERCANIDIPINE [Suspect]
     Active Substance: LERCANIDIPINE
     Dosage: 5 MG, Q12H
     Route: 065
  25. TOVIAZ [Suspect]
     Active Substance: FESOTERODINE FUMARATE
     Indication: PRODUCT USED FOR UNKNOWN INDICATION
     Dosage: 8 MG, 1-0-0-0
     Route: 065
  26. TOVIAZ [Suspect]
     Active Substance: FESOTERODINE FUMARATE
     Dosage: 8 MG, QD
     Route: 065
  27. TOVIAZ [Suspect]
     Active Substance: FESOTERODINE FUMARATE
     Route: 065
  28. ALLOPURINOL. [Concomitant]
     Active Substance: ALLOPURINOL
     Dosage: 300 MG, QD
  29. METAMIZOLE [Concomitant]
     Active Substance: METAMIZOLE
     Dosage: UNK ()
  30. METAMIZOLE [Concomitant]
     Active Substance: METAMIZOLE
     Dosage: UNK ()

REACTIONS (1)
  - Dizziness [Unknown]

NARRATIVE: CASE EVENT DATE: 20151021
